FAERS Safety Report 7927882-0 (Version None)
Quarter: 2011Q4

REPORT INFORMATION
  Report Type: 
  Country: None (occurrence: None)
  Receive Date: 20111118
  Receipt Date: 20111111
  Transmission Date: 20120403
  Serious: Yes (Other)
  Sender: FDA-Public Use
  Company Number: ES-PFIZER INC-2011269511

PATIENT
  Age: 71 Year
  Sex: Male

DRUGS (1)
  1. PANTOPRAZOLE [Suspect]
     Dosage: 20 MG DAILY
     Route: 048

REACTIONS (3)
  - HYPOMAGNESAEMIA [None]
  - HYPOPARATHYROIDISM [None]
  - HYPOCALCAEMIA [None]
